FAERS Safety Report 10009404 (Version 2)
Quarter: 2014Q1

REPORT INFORMATION
  Report Type: Spontaneous
  Country: US (occurrence: US)
  Receive Date: 20140313
  Receipt Date: 20140313
  Transmission Date: 20141002
  Serious: Yes (Other)
  Sender: FDA-Public Use
  Company Number: US-GE HEALTHCARE MEDICAL DIAGNOSTICS-OSCN-PR-0805S-0255

PATIENT
  Age: 47 Year
  Sex: Male

DRUGS (6)
  1. OMNISCAN [Suspect]
     Indication: VISUAL ACUITY REDUCED
     Route: 042
     Dates: start: 19970415, end: 19970415
  2. OMNISCAN [Suspect]
     Indication: PITUITARY TUMOUR BENIGN
     Route: 042
     Dates: start: 19990708, end: 19990708
  3. OMNISCAN [Suspect]
     Indication: TRANSPLANT EVALUATION
     Route: 042
     Dates: start: 20020214, end: 20020214
  4. OMNISCAN [Suspect]
     Indication: ARACHNOID CYST
     Route: 042
     Dates: start: 20020403, end: 20020403
  5. OMNISCAN [Suspect]
     Indication: TRANSPLANT EVALUATION
     Route: 042
     Dates: start: 20040909, end: 20040909
  6. EPOGEN [Concomitant]

REACTIONS (1)
  - Nephrogenic systemic fibrosis [Not Recovered/Not Resolved]
